FAERS Safety Report 23161385 (Version 3)
Quarter: 2025Q2

REPORT INFORMATION
  Report Type: Spontaneous
  Country: CA (occurrence: CA)
  Receive Date: 20231108
  Receipt Date: 20250422
  Transmission Date: 20250716
  Serious: Yes (Hospitalization)
  Sender: ROCHE
  Company Number: CA-ROCHE-3454450

PATIENT
  Age: 46 Year
  Sex: Female

DRUGS (5)
  1. RITUXIMAB [Suspect]
     Active Substance: RITUXIMAB
     Indication: Systemic scleroderma
     Route: 042
  2. RITUXIMAB [Suspect]
     Active Substance: RITUXIMAB
     Route: 042
  3. ACETAMINOPHEN [Concomitant]
     Active Substance: ACETAMINOPHEN
     Indication: Product used for unknown indication
     Route: 048
  4. DIPHENHYDRAMINE [Concomitant]
     Active Substance: DIPHENHYDRAMINE
     Indication: Product used for unknown indication
     Route: 048
  5. METHYLPREDNISOLONE [Concomitant]
     Active Substance: METHYLPREDNISOLONE
     Indication: Product used for unknown indication
     Route: 042

REACTIONS (11)
  - Chills [Recovered/Resolved]
  - Headache [Recovered/Resolved]
  - Off label use [Unknown]
  - Pyrexia [Recovered/Resolved]
  - Illness [Recovered/Resolved]
  - Lung disorder [Recovered/Resolved]
  - Dental restoration failure [Recovered/Resolved]
  - Hypotension [Recovered/Resolved]
  - Localised infection [Recovered/Resolved]
  - Pneumonia [Recovered/Resolved]
  - Sepsis [Recovered/Resolved]
